FAERS Safety Report 7306483-1 (Version None)
Quarter: 2011Q1

REPORT INFORMATION
  Report Type: 
  Country: None (occurrence: None)
  Receive Date: 20110222
  Receipt Date: 20110214
  Transmission Date: 20110831
  Serious: Yes (Other)
  Sender: FDA-Public Use
  Company Number: US-AMGEN-USASP2011005393

PATIENT
  Age: 71 Year
  Sex: Female
  Weight: 101 kg

DRUGS (3)
  1. NPLATE [Suspect]
     Indication: IDIOPATHIC THROMBOCYTOPENIC PURPURA
     Dosage: 101 A?G, ONE TIME DOSE
     Route: 058
     Dates: start: 20100412, end: 20100512
  2. CORTICOSTEROIDS [Concomitant]
     Dosage: UNK
     Dates: start: 20100225
  3. RITUXIMAB [Concomitant]
     Dosage: UNK
     Dates: start: 20100331

REACTIONS (1)
  - NO ADVERSE EVENT [None]
